FAERS Safety Report 7433161-0 (Version None)
Quarter: 2011Q2

REPORT INFORMATION
  Report Type: 
  Country: None (occurrence: None)
  Receive Date: 20110415
  Receipt Date: 20090901
  Transmission Date: 20111010
  Serious: Yes (Hospitalization, Other)
  Sender: FDA-Public Use
  Company Number: 2009SP023508

PATIENT
  Age: 34 Year
  Sex: Female

DRUGS (1)
  1. NUVARING [Suspect]
     Indication: CONTRACEPTION
     Dates: start: 20030101, end: 20060101

REACTIONS (7)
  - MACULAR DEGENERATION [None]
  - PULMONARY THROMBOSIS [None]
  - BACK PAIN [None]
  - INJURY [None]
  - HYPERTENSION [None]
  - PULMONARY EMBOLISM [None]
  - OEDEMA PERIPHERAL [None]
